FAERS Safety Report 9444289 (Version 1)
Quarter: 2013Q3

REPORT INFORMATION
  Report Type: Spontaneous
  Country: BR (occurrence: BR)
  Receive Date: 20130807
  Receipt Date: 20130807
  Transmission Date: 20140515
  Serious: Yes (Other)
  Sender: FDA-Public Use
  Company Number: BR-AMGEN-BRASP2012011313

PATIENT
  Age: 30 Year
  Sex: Female
  Weight: 55 kg

DRUGS (7)
  1. ENBREL [Suspect]
     Indication: ANKYLOSING SPONDYLITIS
     Dosage: 50 MG, ONCE WEEKLY
     Route: 058
     Dates: start: 2005, end: 2012
  2. ENBREL [Suspect]
     Dosage: 25 MG, TWICE A WEEK
     Route: 058
     Dates: end: 201212
  3. NIMESULIDE [Concomitant]
     Dosage: UNK
  4. PURAN T4 [Concomitant]
     Indication: HYPOTHYROIDISM
     Dosage: 1 TABLET (50 MG), 1X/DAY
  5. CYMBALTA [Concomitant]
     Dosage: 1 TABLET (30 MG), 1X/DAY
  6. INDOCID                            /00003801/ [Concomitant]
     Dosage: 50 MG, 2X/DAY (EVERY 12 HOURS)
  7. INDOCID                            /00003801/ [Concomitant]
     Dosage: 1 TABLET (50 MG), ^THREE TIMES^ (FREQUENCY NOT OTHERWISE SPECIFIED)

REACTIONS (3)
  - Pain [Unknown]
  - Uveitis [Unknown]
  - Injection site pain [Unknown]
